FAERS Safety Report 8277501-1 (Version None)
Quarter: 2012Q2

REPORT INFORMATION
  Report Type: 
  Country: None (occurrence: None)
  Receive Date: 20120412
  Receipt Date: 20120406
  Transmission Date: 20120825
  Serious: Yes (Other)
  Sender: FDA-Public Use
  Company Number: IT-BRISTOL-MYERS SQUIBB COMPANY-16440562

PATIENT
  Age: 52 Year
  Sex: Male

DRUGS (1)
  1. ABATACEPT [Suspect]

REACTIONS (2)
  - NON-HODGKIN'S LYMPHOMA [None]
  - LOCAL SWELLING [None]
